FAERS Safety Report 23104964 (Version 4)
Quarter: 2023Q4

REPORT INFORMATION
  Report Type: Spontaneous
  Country: DE (occurrence: DE)
  Receive Date: 20231025
  Receipt Date: 20231213
  Transmission Date: 20240110
  Serious: Yes (Hospitalization, Other)
  Sender: FDA-Public Use
  Company Number: DE-ALNYLAM PHARMACEUTICALS, INC.-ALN-2023-005502

PATIENT

DRUGS (11)
  1. OXLUMO [Suspect]
     Active Substance: LUMASIRAN
     Indication: Primary hyperoxaluria
     Dosage: 6 MILLIGRAM/KILOGRAM, Q3M
     Route: 058
     Dates: start: 20210901
  2. OXLUMO [Suspect]
     Active Substance: LUMASIRAN
     Dosage: 6 MILLIGRAM/KILOGRAM, Q3M
     Route: 058
     Dates: start: 20230728
  3. ALFACALCIDOL [Concomitant]
     Active Substance: ALFACALCIDOL
     Indication: Product used for unknown indication
     Dosage: 5 DROP, QD
     Route: 048
  4. Vigantol [Concomitant]
     Indication: Product used for unknown indication
     Dosage: 500 INTERNATIONAL UNIT, QD
     Route: 048
  5. ENOXAPARIN SODIUM [Concomitant]
     Active Substance: ENOXAPARIN SODIUM
     Indication: Product used for unknown indication
     Dosage: 16 MILLIGRAM
     Route: 042
  6. ENOXAPARIN SODIUM [Concomitant]
     Active Substance: ENOXAPARIN SODIUM
     Dosage: 12 MILLIGRAM
     Route: 058
  7. SODIUM GLYCEROPHOSPHATE [Concomitant]
     Active Substance: SODIUM GLYCEROPHOSPHATE
     Indication: Product used for unknown indication
     Dosage: 1.5 MILLILITER, BID
     Route: 065
  8. VITAMIN B6 [Concomitant]
     Active Substance: PYRIDOXINE HYDROCHLORIDE
     Indication: Product used for unknown indication
     Dosage: 50 MILLIGRAM, QD
     Route: 048
  9. NUTROPINAQ [Concomitant]
     Indication: Product used for unknown indication
     Dosage: 5 MILLIGRAM (IN THE EVENING)
     Route: 058
  10. FERRLECIT [Concomitant]
     Active Substance: SODIUM FERRIC GLUCONATE COMPLEX
     Indication: Product used for unknown indication
     Dosage: 31.25 MILLIGRAM (THRICE WEEKLY ON MON, WED, FRI)
     Route: 042
  11. EPOETIN BETA [Concomitant]
     Active Substance: ERYTHROPOIETIN
     Indication: Product used for unknown indication
     Dosage: 3000 INTERNATIONAL UNIT (THRICE WEEKLY ON MON, WED, FRI)
     Route: 042

REACTIONS (3)
  - Central nervous system lesion [Not Recovered/Not Resolved]
  - Optic neuritis [Not Recovered/Not Resolved]
  - Serratia infection [Unknown]

NARRATIVE: CASE EVENT DATE: 20230801
